FAERS Safety Report 8920599 (Version 1)
Quarter: 2012Q4

REPORT INFORMATION
  Report Type: 
  Country: US (occurrence: US)
  Receive Date: 20121121
  Receipt Date: 20121121
  Transmission Date: 20130627
  Serious: No
  Sender: FDA-Public Use
  Company Number: US-009507513-1211USA008218

PATIENT
  Age: 56 Year
  Sex: Female

DRUGS (10)
  1. ZETIA [Suspect]
     Dosage: 10 mg, qd
     Route: 048
  2. SINGULAIR [Suspect]
     Dosage: 10 mg, hs
     Route: 048
  3. ENALAPRIL MALEATE [Suspect]
     Dosage: 10 mg, qd
     Route: 048
  4. FLEXERIL [Concomitant]
     Dosage: 10 mg, tid
     Route: 048
     Dates: start: 20110706
  5. TRAMADOL HYDROCHLORIDE [Concomitant]
     Indication: PAIN
     Dosage: 50 mg, prn
     Route: 048
     Dates: start: 20010101
  6. LIPITOR [Concomitant]
     Dosage: 20 mg, qd
     Route: 048
  7. ASPIRIN [Concomitant]
     Dosage: 81 mg, qd
     Route: 048
  8. PROAIR HFA [Concomitant]
     Dosage: 2 DF, prn
     Route: 055
  9. ADVAIR [Concomitant]
     Dosage: 1 DF, bid
     Route: 055
  10. METFORMIN HYDROCHLORIDE [Concomitant]
     Dosage: 1000 mg, bid
     Route: 048

REACTIONS (2)
  - Type 2 diabetes mellitus [Unknown]
  - Pain [Unknown]
